FAERS Safety Report 7037591-0 (Version None)
Quarter: 2010Q4

REPORT INFORMATION
  Report Type: 
  Country: None (occurrence: None)
  Receive Date: 20101011
  Receipt Date: 20100928
  Transmission Date: 20110411
  Serious: Yes (Disabling, Other)
  Sender: FDA-Public Use
  Company Number: PHHY2010US61458

PATIENT
  Sex: Female
  Weight: 52.7 kg

DRUGS (9)
  1. GLEEVEC [Suspect]
     Indication: CHRONIC LYMPHOCYTIC LEUKAEMIA
     Dosage: 600 MG, QD
     Route: 048
     Dates: start: 20100201, end: 20100412
  2. GLEEVEC [Suspect]
     Dosage: 400 MG,
     Dates: start: 20100401, end: 20100501
  3. GLEEVEC [Suspect]
     Dosage: 300 MG, UNK
     Dates: start: 20100501, end: 20100801
  4. GLEEVEC [Suspect]
     Dosage: 100MG X4 TAB DAILY
     Route: 048
     Dates: start: 20100301, end: 20100701
  5. GLEEVEC [Suspect]
     Dosage: 100 MG, TAKES 3 PO
     Route: 048
     Dates: end: 20100802
  6. LASIX [Concomitant]
     Dosage: 40 MG, TAKE 0.5
     Route: 048
  7. K-DUR [Concomitant]
     Dosage: 10 MEQ
  8. LIPITOR [Concomitant]
  9. NILOTINIB HYDROCHLORIDE [Concomitant]
     Dosage: 150 MG, TAKES 2 BID
     Route: 048

REACTIONS (14)
  - ASTHMA [None]
  - BLISTER [None]
  - DISEASE PROGRESSION [None]
  - DRUG INTOLERANCE [None]
  - ERYTHEMA [None]
  - HAEMATOTOXICITY [None]
  - HAEMORRHAGE [None]
  - MEDICAL DEVICE IMPLANTATION [None]
  - NIGHT SWEATS [None]
  - PALMAR-PLANTAR ERYTHRODYSAESTHESIA SYNDROME [None]
  - RASH [None]
  - SKIN EXFOLIATION [None]
  - SWELLING [None]
  - TRANSAMINASES INCREASED [None]
